FAERS Safety Report 12960082 (Version 1)
Quarter: 2016Q4

REPORT INFORMATION
  Report Type: Not Available
  Country: IN (occurrence: IN)
  Receive Date: 20161121
  Receipt Date: 20161121
  Transmission Date: 20170207
  Serious: Yes (Other)
  Sender: FDA-Public Use
  Company Number: IN-AKORN-43805

PATIENT
  Age: 75 Year
  Sex: Male

DRUGS (1)
  1. LEVOFLOXACIN ORAL SOLUTION [Suspect]
     Active Substance: LEVOFLOXACIN

REACTIONS (3)
  - Optic atrophy [Not Recovered/Not Resolved]
  - Arachnoiditis [Not Recovered/Not Resolved]
  - Optic neuropathy [Not Recovered/Not Resolved]
